FAERS Safety Report 8350023-5 (Version None)
Quarter: 2012Q2

REPORT INFORMATION
  Report Type: 
  Country: None (occurrence: None)
  Receive Date: 20120510
  Receipt Date: 20120426
  Transmission Date: 20120825
  Serious: Yes (Death, Hospitalization)
  Sender: FDA-Public Use
  Company Number: US-ACTELION-A-NJ2011-57032

PATIENT

DRUGS (3)
  1. SILDENAFIL [Concomitant]
  2. LETAIRIS [Concomitant]
  3. EPOPROSTENOL SODIUM [Suspect]
     Indication: PULMONARY ARTERIAL HYPERTENSION
     Dosage: 243 NG/KG, PER MIN
     Route: 041
     Dates: start: 20110425, end: 20111124

REACTIONS (4)
  - PNEUMONIA [None]
  - SUICIDE ATTEMPT [None]
  - DEATH [None]
  - GENERALISED ERYTHEMA [None]
